FAERS Safety Report 7802070-7 (Version None)
Quarter: 2011Q4

REPORT INFORMATION
  Report Type: 
  Country: None (occurrence: None)
  Receive Date: 20111007
  Receipt Date: 20111003
  Transmission Date: 20120403
  Serious: Yes (Death, Hospitalization)
  Sender: FDA-Public Use
  Company Number: PHHY2011DO87519

PATIENT
  Age: 82 Year
  Sex: Male

DRUGS (2)
  1. INSULIN [Concomitant]
  2. DIOVAN HCT [Suspect]
     Indication: HYPERTENSION
     Dosage: 160 MG VALS /12.5 MG HCT, PER DAY
     Route: 048

REACTIONS (1)
  - MULTIPLE MYELOMA [None]
